FAERS Safety Report 8728485 (Version 2)
Quarter: 2013Q2

REPORT INFORMATION
  Report Type: Spontaneous
  Country: FR (occurrence: FR)
  Receive Date: 20120817
  Receipt Date: 20130418
  Transmission Date: 20140414
  Serious: Yes (Hospitalization)
  Sender: FDA-Public Use
  Company Number: FR-SANOFI-AVENTIS-2012SA057418

PATIENT
  Age: 74 Year
  Sex: Female

DRUGS (17)
  1. LASILIX [Suspect]
     Indication: CARDIAC FAILURE
     Route: 048
     Dates: start: 20120530, end: 20120605
  2. CEFTRIAXONE [Suspect]
     Indication: PRODUCT USED FOR UNKNOWN INDICATION
     Route: 042
     Dates: start: 20120605, end: 20120609
  3. METRONIDAZOLE [Suspect]
     Indication: PRODUCT USED FOR UNKNOWN INDICATION
     Route: 042
     Dates: start: 20120608, end: 20120609
  4. ARIXTRA [Suspect]
     Indication: THROMBOSIS PROPHYLAXIS
     Route: 058
     Dates: start: 201205
  5. PERFALGAN [Suspect]
     Indication: PAIN
     Route: 042
     Dates: start: 20120605, end: 20120608
  6. BISOPROLOL [Suspect]
     Indication: CARDIAC FAILURE
     Route: 048
     Dates: start: 20120607, end: 20120608
  7. AMLODIPINE [Suspect]
     Indication: HYPERTENSION
     Route: 048
     Dates: start: 20120602
  8. CRESTOR /UNK/ [Suspect]
     Indication: DYSLIPIDAEMIA
     Route: 048
     Dates: start: 2012, end: 20120608
  9. RISPERDAL [Suspect]
     Indication: DEPRESSION
     Route: 048
     Dates: start: 201205, end: 20120613
  10. DIFFU K [Suspect]
     Indication: HYPOKALAEMIA
     Route: 048
     Dates: start: 20120530
  11. VENLAFAXINE [Suspect]
     Indication: DEPRESSION
     Route: 048
     Dates: end: 20120604
  12. VENLAFAXINE [Suspect]
     Indication: DEPRESSION
     Route: 048
     Dates: start: 20120605, end: 20120612
  13. COLECALCIFEROL [Suspect]
     Indication: VITAMIN D DEFICIENCY
     Route: 048
     Dates: start: 20120606, end: 20120607
  14. HEMIGOXINE NATIVELLE [Suspect]
     Indication: CARDIAC FAILURE
     Route: 048
     Dates: start: 20120601
  15. KARDEGIC [Concomitant]
  16. MACROGOL [Concomitant]
     Route: 048
  17. FERROUS SULFATE [Concomitant]
     Route: 048

REACTIONS (1)
  - Hepatitis [Recovered/Resolved]
